FAERS Safety Report 7457169-4 (Version None)
Quarter: 2011Q2

REPORT INFORMATION
  Report Type: 
  Country: None (occurrence: None)
  Receive Date: 20110504
  Receipt Date: 20110422
  Transmission Date: 20111010
  Serious: Yes (Other)
  Sender: FDA-Public Use
  Company Number: SI-JNJFOC-20110310595

PATIENT

DRUGS (4)
  1. OXYGEN [Concomitant]
     Route: 065
  2. TAVEGIL [Concomitant]
     Route: 065
  3. SOLU-MEDROL [Concomitant]
     Route: 065
  4. CAELYX [Suspect]
     Indication: PRODUCT USED FOR UNKNOWN INDICATION
     Route: 042

REACTIONS (8)
  - PRODUCT QUALITY ISSUE [None]
  - INFUSION RELATED REACTION [None]
  - FLUSHING [None]
  - CHEST PAIN [None]
  - FEELING HOT [None]
  - OXYGEN SATURATION DECREASED [None]
  - BACK PAIN [None]
  - HYPERTENSION [None]
